APPROVED DRUG PRODUCT: ZYPREXA
Active Ingredient: OLANZAPINE
Strength: 10MG/VIAL
Dosage Form/Route: POWDER;INTRAMUSCULAR
Application: N021253 | Product #001 | TE Code: AP
Applicant: CHEPLAPHARM REGISTRATION GMBH
Approved: Mar 29, 2004 | RLD: Yes | RS: Yes | Type: RX